FAERS Safety Report 19008999 (Version 1)
Quarter: 2021Q1

REPORT INFORMATION
  Report Type: Spontaneous
  Country: US (occurrence: US)
  Receive Date: 20210315
  Receipt Date: 20210315
  Transmission Date: 20210420
  Serious: No
  Sender: FDA-Public Use
  Company Number: US-PFIZER INC-2021204374

PATIENT
  Age: 83 Year
  Sex: Male
  Weight: 90.7 kg

DRUGS (1)
  1. SUTENT [Suspect]
     Active Substance: SUNITINIB MALATE
     Indication: RENAL CANCER
     Dosage: 50 MG, CYCLIC (DAILY FOR 4 WEEKS ON/2 WEEKS OFF)
     Route: 048
     Dates: start: 20200803

REACTIONS (1)
  - Blister [Unknown]
